FAERS Safety Report 16088187 (Version 1)
Quarter: 2019Q2

REPORT INFORMATION
  Report Type: Spontaneous
  Country: US (occurrence: US)
  Receive Date: 20190318
  Receipt Date: 20190318
  Transmission Date: 20190711
  Serious: No
  Sender: FDA-Public Use
  Company Number: None

PATIENT
  Age: 48 Year
  Sex: Female
  Weight: 47.25 kg

DRUGS (13)
  1. OMEGA 3 [Concomitant]
     Active Substance: OMEGA-3 FATTY ACIDS
  2. MULTIVITAMIN [Concomitant]
     Active Substance: VITAMINS
  3. SUMATRIPTAN. [Concomitant]
     Active Substance: SUMATRIPTAN
  4. DHEA [Concomitant]
     Active Substance: PRASTERONE
  5. CITICOLINE [Concomitant]
     Active Substance: CITICOLINE
  6. VIT D [Concomitant]
     Active Substance: VITAMIN D NOS
  7. UBIQUINOL [Concomitant]
     Active Substance: UBIQUINOL
  8. RIZITRIPTAN [Concomitant]
  9. MAGNESIUM [Concomitant]
     Active Substance: MAGNESIUM
  10. NAPROXIN [Concomitant]
     Active Substance: NAPROXEN
  11. AJOVY [Suspect]
     Active Substance: FREMANEZUMAB-VFRM
     Indication: MIGRAINE
     Dosage: ?          QUANTITY:1 INJECTION(S);?
     Route: 030
  12. PS CAPS [Concomitant]
  13. CURCUMIN/TURMERIC [Concomitant]

REACTIONS (11)
  - Headache [None]
  - Head discomfort [None]
  - Bowel movement irregularity [None]
  - Ear congestion [None]
  - Malaise [None]
  - Agitation [None]
  - Insomnia [None]
  - Neck pain [None]
  - Tinnitus [None]
  - Visual impairment [None]
  - Feeling abnormal [None]

NARRATIVE: CASE EVENT DATE: 20190216
